FAERS Safety Report 7553636-3 (Version None)
Quarter: 2011Q2

REPORT INFORMATION
  Report Type: 
  Country: None (occurrence: None)
  Receive Date: 20110617
  Receipt Date: 20100602
  Transmission Date: 20111010
  Serious: No
  Sender: FDA-Public Use
  Company Number: US-MYLANLABS-2010S1009936

PATIENT
  Age: 13 Year
  Sex: Male
  Weight: 81.19 kg

DRUGS (6)
  1. AUGMENTIN '125' [Concomitant]
     Indication: BRONCHITIS
     Dates: start: 20100519, end: 20100528
  2. ASMANEX TWISTHALER [Concomitant]
     Indication: ASTHMA
     Route: 055
     Dates: start: 20100201
  3. VITAMIN D [Concomitant]
     Dates: start: 20100301
  4. OMEPRAZOLE [Suspect]
     Indication: GASTROOESOPHAGEAL REFLUX DISEASE
     Route: 048
     Dates: start: 20100412, end: 20100524
  5. XOLAIR [Concomitant]
     Indication: ASTHMA
     Dosage: INJECTABLE Q2WEEKS
     Dates: start: 20100401
  6. CLARITIN /00917501/ [Concomitant]
     Indication: HYPERSENSITIVITY
     Dates: start: 20100301

REACTIONS (2)
  - URINARY INCONTINENCE [None]
  - WEIGHT INCREASED [None]
